FAERS Safety Report 20302653 (Version 9)
Quarter: 2022Q3

REPORT INFORMATION
  Report Type: Report from Study
  Country: US (occurrence: US)
  Receive Date: 20220106
  Receipt Date: 20220708
  Transmission Date: 20221026
  Serious: Yes (Hospitalization, Other)
  Sender: FDA-Public Use
  Company Number: US-NOVARTISTESTPH-NVSC2022US001414

PATIENT
  Sex: Female

DRUGS (2)
  1. PROMACTA [Suspect]
     Active Substance: ELTROMBOPAG OLAMINE
     Indication: Product used for unknown indication
     Dosage: UNK
     Route: 065
  2. PROMACTA [Suspect]
     Active Substance: ELTROMBOPAG OLAMINE
     Dosage: 25 MG, QD
     Route: 065
     Dates: start: 20210920, end: 20220326

REACTIONS (9)
  - Platelet count decreased [Unknown]
  - Atrial fibrillation [Unknown]
  - Cataract [Unknown]
  - Visual impairment [Unknown]
  - Contusion [Unknown]
  - Purpura [Unknown]
  - Asthenia [Unknown]
  - Rash [Unknown]
  - Product dose omission issue [Unknown]
